FAERS Safety Report 18257772 (Version 2)
Quarter: 2020Q3

REPORT INFORMATION
  Report Type: Spontaneous
  Country: CH (occurrence: CH)
  Receive Date: 20200911
  Receipt Date: 20200924
  Transmission Date: 20201103
  Serious: Yes (Other)
  Sender: FDA-Public Use
  Company Number: CH-PFIZER INC-2020349610

PATIENT
  Age: 47 Year
  Sex: Male

DRUGS (2)
  1. DOSTINEX [Suspect]
     Active Substance: CABERGOLINE
     Indication: PROLACTIN-PRODUCING PITUITARY TUMOUR
     Dosage: 0.5 (2 TBL 1X WEEK)
     Route: 048
     Dates: start: 20200330
  2. DOSTINEX [Suspect]
     Active Substance: CABERGOLINE
     Dosage: 1 MG

REACTIONS (3)
  - Hordeolum [Unknown]
  - Furuncle [Recovered/Resolved]
  - Infection susceptibility increased [Unknown]
